FAERS Safety Report 5046926-X (Version None)
Quarter: 2006Q2

REPORT INFORMATION
  Report Type: 
  Country: None (occurrence: None)
  Receive Date: 20060630
  Receipt Date: 20060620
  Transmission Date: 20061013
  Serious: Yes (Other)
  Sender: FDA-Public Use
  Company Number: 2006078605

PATIENT
  Age: 71 Year
  Sex: Female

DRUGS (2)
  1. SULPERAZON (SULBACTAM CEFOPERAZONE) [Suspect]
     Indication: POSTOPERATIVE CARE
     Dosage: INTRAVENOUS
     Route: 042
     Dates: start: 20060110, end: 20060113
  2. CEFOTIAM HYDROCHLORIDE [Suspect]
     Dosage: INTRAVENOUS
     Route: 042
     Dates: start: 20060430, end: 20060430

REACTIONS (1)
  - ANAEMIA HAEMOLYTIC AUTOIMMUNE [None]
